FAERS Safety Report 12909453 (Version 1)
Quarter: 2016Q4

REPORT INFORMATION
  Report Type: Report from Study
  Country: JP (occurrence: JP)
  Receive Date: 20161104
  Receipt Date: 20161104
  Transmission Date: 20170207
  Serious: Yes (Other)
  Sender: FDA-Public Use
  Company Number: JP-ALXN-A201608337AA

PATIENT
  Age: 2 Year
  Sex: Female
  Weight: 6.96 kg

DRUGS (1)
  1. STRENSIQ [Suspect]
     Active Substance: ASFOTASE ALFA
     Indication: HYPOPHOSPHATASIA
     Dosage: 2 MG/KG, TIW
     Route: 058
     Dates: start: 20150923

REACTIONS (2)
  - Extraskeletal ossification [Unknown]
  - Metaphyseal dysplasia [Unknown]

NARRATIVE: CASE EVENT DATE: 20160915
